FAERS Safety Report 7386274-6 (Version None)
Quarter: 2011Q1

REPORT INFORMATION
  Report Type: 
  Country: None (occurrence: None)
  Receive Date: 20110323
  Receipt Date: 20110311
  Transmission Date: 20110831
  Serious: Yes (Hospitalization)
  Sender: FDA-Public Use
  Company Number: 1000018120

PATIENT
  Age: 23 Year
  Sex: Female

DRUGS (1)
  1. FOSFOMYCIN (FOSFOMYCIN TROMETAMOL) (GRANULATE) [Suspect]
     Indication: URINARY TRACT INFECTION
     Dosage: (3 GM,ONCE), ORAL
     Route: 048
     Dates: start: 20101222, end: 20101222

REACTIONS (3)
  - HYPERSENSITIVITY [None]
  - URTICARIA [None]
  - RASH GENERALISED [None]
